FAERS Safety Report 9060092 (Version 1)
Quarter: 2013Q1

REPORT INFORMATION
  Report Type: Spontaneous
  Country: US (occurrence: None)
  Receive Date: 20130207
  Receipt Date: 20130207
  Transmission Date: 20140127
  Serious: Yes (Other)
  Sender: FDA-Public Use
  Company Number: None

PATIENT
  Sex: Female
  Weight: 88 kg

DRUGS (1)
  1. QUINAPRIL 10MG [Suspect]
     Indication: HYPERTENSION
     Dosage: 1.5 TABLETS DAILY ORALLY
     Route: 048
     Dates: start: 2005

REACTIONS (1)
  - Urticaria [None]
